FAERS Safety Report 14039049 (Version 1)
Quarter: 2017Q4

REPORT INFORMATION
  Report Type: Spontaneous
  Country: JP (occurrence: JP)
  Receive Date: 20171004
  Receipt Date: 20171004
  Transmission Date: 20180321
  Serious: Yes (Other)
  Sender: FDA-Public Use
  Company Number: JP-BAYER-2017-183205

PATIENT
  Age: 50 Year

DRUGS (1)
  1. STIVARGA [Suspect]
     Active Substance: REGORAFENIB
     Indication: GASTROINTESTINAL STROMAL TUMOUR
     Route: 048

REACTIONS (7)
  - Gastrointestinal stromal tumour [None]
  - Cough [None]
  - Hypertension [None]
  - Pyrexia [None]
  - Palmar-plantar erythrodysaesthesia syndrome [None]
  - Abdominal pain [None]
  - Abdominal discomfort [None]
